FAERS Safety Report 21461906 (Version 1)
Quarter: 2022Q4

REPORT INFORMATION
  Report Type: Spontaneous
  Country: US (occurrence: US)
  Receive Date: 20221015
  Receipt Date: 20221015
  Transmission Date: 20230113
  Serious: No
  Sender: FDA-Public Use
  Company Number: US-JNJFOC-20221014296

PATIENT
  Age: 69 Year
  Sex: Male

DRUGS (8)
  1. ZYTIGA [Suspect]
     Active Substance: ABIRATERONE ACETATE
     Indication: Product used for unknown indication
     Route: 048
     Dates: start: 20210608, end: 20220505
  2. BISOPROLOL FUMARATE [Concomitant]
     Active Substance: BISOPROLOL FUMARATE
     Dates: start: 20210607, end: 20221005
  3. LISINOPRIL [Concomitant]
     Active Substance: LISINOPRIL
     Dates: start: 20210607
  4. ATORVASTATIN CALCIUM [Concomitant]
     Active Substance: ATORVASTATIN CALCIUM
     Dates: start: 20210607
  5. VENLAFAXINE HYDROCHLORIDE [Concomitant]
     Active Substance: VENLAFAXINE HYDROCHLORIDE
     Dates: start: 20210607, end: 20221005
  6. CO ENZYME Q10 [UBIDECARENONE] [Concomitant]
     Dates: start: 20210607, end: 20221005
  7. HERBALS\TURMERIC [Concomitant]
     Active Substance: HERBALS\TURMERIC
     Dates: start: 20210607, end: 20221005
  8. BAYER ASPIRIN [Concomitant]
     Active Substance: ASPIRIN
     Dates: start: 20210607

REACTIONS (1)
  - Hot flush [Recovering/Resolving]

NARRATIVE: CASE EVENT DATE: 20220608
